FAERS Safety Report 23776533 (Version 1)
Quarter: 2024Q2

REPORT INFORMATION
  Report Type: Spontaneous
  Country: US (occurrence: US)
  Receive Date: 20240424
  Receipt Date: 20240424
  Transmission Date: 20240716
  Serious: No
  Sender: FDA-Public Use
  Company Number: US-SA-SAC20240419000627

PATIENT
  Age: 86 Year
  Sex: Male
  Weight: 68 kg

DRUGS (8)
  1. DUPIXENT [Suspect]
     Active Substance: DUPILUMAB
     Indication: Seborrhoeic keratosis
     Dosage: 300 MG, QOW
     Route: 058
  2. DUPIXENT [Suspect]
     Active Substance: DUPILUMAB
     Indication: Dermatitis atopic
  3. BETAMETHASONE [Concomitant]
     Active Substance: BETAMETHASONE\BETAMETHASONE DIPROPIONATE
  4. ELIQUIS [Concomitant]
     Active Substance: APIXABAN
  5. GLIPIZIDE [Concomitant]
     Active Substance: GLIPIZIDE
  6. LOSARTAN [Concomitant]
     Active Substance: LOSARTAN
  7. METFORMIN [Concomitant]
     Active Substance: METFORMIN HYDROCHLORIDE
  8. VITAMINS NOS [Concomitant]
     Active Substance: VITAMINS

REACTIONS (14)
  - Rhinorrhoea [Unknown]
  - Abdominal discomfort [Unknown]
  - Diarrhoea [Unknown]
  - Dysphonia [Unknown]
  - Blood glucose increased [Unknown]
  - Eye disorder [Unknown]
  - Gait disturbance [Unknown]
  - Pain [Unknown]
  - Toothache [Unknown]
  - Dizziness [Unknown]
  - Oropharyngeal pain [Unknown]
  - Oral herpes [Unknown]
  - Arthralgia [Unknown]
  - Product use in unapproved indication [Unknown]
